FAERS Safety Report 6417565-0 (Version None)
Quarter: 2009Q4

REPORT INFORMATION
  Report Type: 
  Country: None (occurrence: None)
  Receive Date: 20091028
  Receipt Date: 20091015
  Transmission Date: 20100525
  Serious: Yes (Other)
  Sender: FDA-Public Use
  Company Number: BR-ROCHE-662900

PATIENT
  Sex: Male

DRUGS (2)
  1. ROACUTAN [Suspect]
     Indication: ACNE
     Route: 065
  2. ETHYL CHLORIDE [Concomitant]
     Dosage: LANCA PERFUME

REACTIONS (3)
  - DIZZINESS [None]
  - FACE INJURY [None]
  - FALL [None]
